FAERS Safety Report 5640656-9 (Version None)
Quarter: 2008Q1

REPORT INFORMATION
  Report Type: 
  Country: None (occurrence: None)
  Receive Date: 20080227
  Receipt Date: 20080226
  Transmission Date: 20080703
  Serious: Yes (Other)
  Sender: FDA-Public Use
  Company Number: A0711876A

PATIENT
  Age: 53 Year
  Sex: Female
  Weight: 71.4 kg

DRUGS (2)
  1. ALLI [Suspect]
     Dates: start: 20080215, end: 20080224
  2. ADVIL [Concomitant]
     Indication: TOOTHACHE
     Dosage: 200MG SEE DOSAGE TEXT
     Dates: start: 20071201

REACTIONS (2)
  - ABDOMINAL PAIN [None]
  - URETHRAL HAEMORRHAGE [None]
